FAERS Safety Report 7584751-6 (Version None)
Quarter: 2011Q2

REPORT INFORMATION
  Report Type: 
  Country: None (occurrence: None)
  Receive Date: 20110630
  Receipt Date: 20110617
  Transmission Date: 20111010
  Serious: Yes (Other)
  Sender: FDA-Public Use
  Company Number: PHHY2011CY53540

PATIENT
  Sex: Male

DRUGS (1)
  1. ZOMETA [Suspect]
     Indication: PROPHYLAXIS
     Dosage: 4 MG/5ML
     Dates: start: 20110429, end: 20110505

REACTIONS (3)
  - EXPOSED BONE IN JAW [None]
  - OSTEOMYELITIS [None]
  - OSTEONECROSIS OF JAW [None]
